FAERS Safety Report 10706380 (Version 1)
Quarter: 2015Q1

REPORT INFORMATION
  Report Type: Report from Study
  Country: NL (occurrence: NL)
  Receive Date: 20150113
  Receipt Date: 20150113
  Transmission Date: 20150721
  Serious: Yes (Death, Life-Threatening, Hospitalization)
  Sender: FDA-Public Use
  Company Number: NL-ROCHE-1518187

PATIENT
  Age: 57 Year
  Sex: Male

DRUGS (3)
  1. EPIRUBICIN [Suspect]
     Active Substance: EPIRUBICIN
     Indication: GASTRIC CANCER
     Dosage: THE LAST DOSE OF RECEIVED ON 18/DEC/2014
     Route: 042
     Dates: start: 20141127
  2. CAPECITABINE. [Suspect]
     Active Substance: CAPECITABINE
     Indication: GASTRIC CANCER
     Dosage: DOSE: 3600?THE LAST DOSE OF RECEIVED ON 31/DEC/2014
     Route: 048
     Dates: start: 20141127
  3. CISPLATIN. [Suspect]
     Active Substance: CISPLATIN
     Indication: GASTRIC CANCER
     Dosage: THE LAST DOSE OF RECEIVED ON 18/DEC/2014
     Route: 042
     Dates: start: 20141127

REACTIONS (2)
  - Diarrhoea [Not Recovered/Not Resolved]
  - Cardiac arrest [Fatal]

NARRATIVE: CASE EVENT DATE: 20141231
